FAERS Safety Report 14852327 (Version 2)
Quarter: 2018Q2

REPORT INFORMATION
  Report Type: Spontaneous
  Country: US (occurrence: US)
  Receive Date: 20180507
  Receipt Date: 20180510
  Transmission Date: 20180711
  Serious: No
  Sender: FDA-Public Use
  Company Number: US-PFIZER INC-2018174661

PATIENT
  Age: 78 Year
  Sex: Male
  Weight: 79 kg

DRUGS (2)
  1. XALKORI [Suspect]
     Active Substance: CRIZOTINIB
     Indication: LUNG NEOPLASM MALIGNANT
     Dosage: 200 MG, 1X/DAY (HE WAS TAKING IT AT NIGHT)
     Route: 048
     Dates: end: 20180425
  2. LYRICA [Concomitant]
     Active Substance: PREGABALIN
     Indication: NEUROPATHY PERIPHERAL
     Dosage: UNK

REACTIONS (5)
  - Abdominal discomfort [Not Recovered/Not Resolved]
  - Weight decreased [Unknown]
  - Hypoaesthesia [Unknown]
  - Constipation [Unknown]
  - Malaise [Not Recovered/Not Resolved]
